FAERS Safety Report 22006428 (Version 1)
Quarter: 2023Q1

REPORT INFORMATION
  Report Type: Other
  Country: US (occurrence: US)
  Receive Date: 20230217
  Receipt Date: 20230217
  Transmission Date: 20230417
  Serious: Yes (Hospitalization, Other)
  Sender: FDA-Public Use
  Company Number: US-HLS-202300055

PATIENT
  Age: 20 Year
  Sex: Male

DRUGS (6)
  1. CLOZAPINE [Suspect]
     Active Substance: CLOZAPINE
     Indication: Aggression
     Route: 065
  2. CLOZAPINE [Suspect]
     Active Substance: CLOZAPINE
     Indication: Hallucination, auditory
     Route: 065
  3. CLOZAPINE [Suspect]
     Active Substance: CLOZAPINE
     Indication: Distractibility
     Route: 065
  4. CLOZAPINE [Suspect]
     Active Substance: CLOZAPINE
     Indication: Paranoia
     Route: 065
  5. CLONAZEPAM [Concomitant]
     Active Substance: CLONAZEPAM
     Indication: Motor dysfunction
     Route: 065
  6. CLONAZEPAM [Concomitant]
     Active Substance: CLONAZEPAM
     Indication: Psychotic symptom
     Route: 065

REACTIONS (9)
  - Decreased appetite [Recovered/Resolved]
  - Seizure [Recovering/Resolving]
  - Catatonia [Recovered/Resolved]
  - Weight decreased [Unknown]
  - Neurological decompensation [Recovered/Resolved]
  - Psychiatric decompensation [Recovered/Resolved]
  - Off label use [Not Recovered/Not Resolved]
  - Off label use [Unknown]
  - Schizophrenia [Unknown]
